FAERS Safety Report 4727038-9 (Version None)
Quarter: 2005Q3

REPORT INFORMATION
  Report Type: 
  Country: None (occurrence: None)
  Receive Date: 20050726
  Receipt Date: 20050726
  Transmission Date: 20060218
  Serious: Yes (Hospitalization)
  Sender: FDA-Public Use
  Company Number: None

PATIENT
  Age: 57 Year
  Sex: Male
  Weight: 44.5 kg

DRUGS (15)
  1. VENLAFAXINE [Suspect]
  2. LEVOTHYROXINE SODIUM [Concomitant]
  3. FUROSEMIDE [Concomitant]
  4. MORPHINE [Concomitant]
  5. MULTIVITAMINS/ZINC [Concomitant]
  6. IPRATROPIUM BROMIDE [Concomitant]
  7. FORMOTEROL [Concomitant]
  8. DOCUSATE [Concomitant]
  9. CALCITONIN-SALMON [Concomitant]
  10. ALBUTEROL [Concomitant]
  11. LORAZEPAM [Concomitant]
  12. BISACODYL [Concomitant]
  13. VANCOMYCIN [Concomitant]
  14. AZITHROMYCIN [Concomitant]
  15. CILASTATIN/IMIPENEM [Concomitant]

REACTIONS (1)
  - DYSPNOEA [None]
